FAERS Safety Report 21518279 (Version 1)
Quarter: 2022Q4

REPORT INFORMATION
  Report Type: Spontaneous
  Country: IT (occurrence: IT)
  Receive Date: 20221028
  Receipt Date: 20221028
  Transmission Date: 20230113
  Serious: Yes (Other)
  Sender: FDA-Public Use
  Company Number: IT-ROCHE-3195425

PATIENT
  Age: 63 Year
  Sex: Male

DRUGS (13)
  1. BENDAMUSTINE HYDROCHLORIDE [Suspect]
     Active Substance: BENDAMUSTINE HYDROCHLORIDE
     Indication: Follicular lymphoma
     Dosage: (3RD LINE OF TREATMENT)
     Route: 042
     Dates: start: 20181220, end: 20190718
  2. PREDNISONE [Suspect]
     Active Substance: PREDNISONE
     Indication: Follicular lymphoma
     Dosage: 1ST LINE OF TREATMENT)
     Route: 065
     Dates: start: 20150716, end: 20160104
  3. DOXORUBICIN [Suspect]
     Active Substance: DOXORUBICIN
     Indication: Follicular lymphoma
     Dosage: 1ST LINE OF TREATMENT)
     Route: 065
     Dates: start: 20150716, end: 20160104
  4. VINCRISTINE [Suspect]
     Active Substance: VINCRISTINE
     Indication: Follicular lymphoma
     Dosage: .(1ST LINE OF TREATMENT)
     Route: 065
     Dates: start: 20150716, end: 20160104
  5. IBERDOMIDE [Suspect]
     Active Substance: IBERDOMIDE
     Indication: Follicular lymphoma
     Dosage: 5TH LINE OF TREATMENT)
     Route: 065
     Dates: start: 20211018
  6. BLINATUMOMAB [Suspect]
     Active Substance: BLINATUMOMAB
     Indication: Follicular lymphoma
     Dosage: 4TH LINE OF TREATMENT)
     Route: 065
     Dates: start: 20210426, end: 20210803
  7. MABTHERA [Suspect]
     Active Substance: RITUXIMAB
     Indication: Follicular lymphoma
     Route: 065
  8. OBINUTUZUMAB [Suspect]
     Active Substance: OBINUTUZUMAB
     Indication: Follicular lymphoma
     Dosage: 3RD LINE OF TREATMENT)
     Route: 042
     Dates: start: 20181220, end: 20190718
  9. OBINUTUZUMAB [Suspect]
     Active Substance: OBINUTUZUMAB
     Dosage: 5TH LINE OF TREATMENT)
     Route: 042
     Dates: start: 20211018
  10. VIBOSTOLIMAB [Suspect]
     Active Substance: VIBOSTOLIMAB
     Indication: Follicular lymphoma
     Dosage: 6TH LINE OF TREATMENT)
     Route: 065
     Dates: start: 20220530, end: 20220822
  11. RITUXIMAB [Suspect]
     Active Substance: RITUXIMAB
     Indication: Follicular lymphoma
     Dosage: 1ST LINE OF TREATMENT)
     Route: 065
     Dates: start: 20150716, end: 20160104
  12. CYCLOPHOSPHAMIDE [Suspect]
     Active Substance: CYCLOPHOSPHAMIDE
     Indication: Follicular lymphoma
     Dosage: .(1ST LINE OF TREATMENT)
     Route: 065
     Dates: start: 20150716, end: 20160104
  13. PEMBROLIZUMAB [Suspect]
     Active Substance: PEMBROLIZUMAB
     Indication: Follicular lymphoma
     Dosage: .(6TH LINE OF TREATMENT)
     Route: 065
     Dates: start: 20220530, end: 20220822

REACTIONS (3)
  - Malignant neoplasm progression [Unknown]
  - Product use issue [Unknown]
  - Off label use [Unknown]
